FAERS Safety Report 13265310 (Version 2)
Quarter: 2017Q1

REPORT INFORMATION
  Report Type: Report from Study
  Country: None (occurrence: FR)
  Receive Date: 20170223
  Receipt Date: 20170308
  Transmission Date: 20170428
  Serious: Yes (Hospitalization, Other)
  Sender: FDA-Public Use
  Company Number: FR-ABBVIE-17P-056-1861889-00

PATIENT
  Age: 47 Year
  Sex: Female

DRUGS (2)
  1. VENETOCLAX [Suspect]
     Active Substance: VENETOCLAX
     Route: 048
  2. VENETOCLAX [Suspect]
     Active Substance: VENETOCLAX
     Indication: CHRONIC LYMPHOCYTIC LEUKAEMIA
     Route: 048

REACTIONS (8)
  - Pyrexia [Unknown]
  - Sepsis [Unknown]
  - Neutropenia [Unknown]
  - Toxoplasmosis [Unknown]
  - Pancytopenia [Unknown]
  - Anaemia [Unknown]
  - Pyrexia [Recovered/Resolved]
  - Platelet count decreased [Unknown]
